FAERS Safety Report 13619520 (Version 1)
Quarter: 2017Q2

REPORT INFORMATION
  Report Type: Spontaneous
  Country: US (occurrence: US)
  Receive Date: 20170606
  Receipt Date: 20170606
  Transmission Date: 20170830
  Serious: No
  Sender: FDA-Public Use
  Company Number: None

PATIENT
  Age: 15 Year
  Sex: Female
  Weight: 49.95 kg

DRUGS (8)
  1. MULTIVITAMIN [Concomitant]
     Active Substance: VITAMINS
  2. WOMEN^S MULTIVITAMIN [Concomitant]
  3. CLARITIN [Concomitant]
     Active Substance: LORATADINE
  4. BIOTIN [Concomitant]
     Active Substance: BIOTIN
  5. ZOLOFT [Concomitant]
     Active Substance: SERTRALINE HYDROCHLORIDE
  6. ACYCLOVIR. [Concomitant]
     Active Substance: ACYCLOVIR
  7. SERTRALINE [Suspect]
     Active Substance: SERTRALINE HYDROCHLORIDE
     Indication: DEPRESSION
     Dosage: ?          QUANTITY:1 TABLET(S);?
     Route: 048
  8. FISH OIL [Concomitant]
     Active Substance: FISH OIL

REACTIONS (3)
  - Anxiety [None]
  - Speech disorder [None]
  - Dysphemia [None]

NARRATIVE: CASE EVENT DATE: 20170602
